FAERS Safety Report 8287069-1 (Version None)
Quarter: 2012Q2

REPORT INFORMATION
  Report Type: 
  Country: None (occurrence: None)
  Receive Date: 20120416
  Receipt Date: 20120403
  Transmission Date: 20120825
  Serious: Yes (Death)
  Sender: FDA-Public Use
  Company Number: US-SANOFI-AVENTIS-2012SA023497

PATIENT
  Age: 72 Year
  Sex: Male
  Weight: 67.57 kg

DRUGS (23)
  1. NASAL SALINE [Concomitant]
     Indication: PROPHYLAXIS
     Dates: start: 20110102, end: 20120324
  2. XANAX [Concomitant]
     Indication: ANXIETY
     Dates: start: 20101213, end: 20120324
  3. HYDROCHLOROTHIAZIDE [Concomitant]
     Indication: HYPERTENSION
     Dates: start: 20050101, end: 20120324
  4. TAMSULOSIN HCL [Concomitant]
     Indication: URINARY RETENTION
  5. DOCETAXEL [Suspect]
     Route: 041
     Dates: start: 20120320, end: 20120320
  6. CALCIUM/VITAMIN D [Concomitant]
  7. AMBIEN [Concomitant]
     Indication: INSOMNIA
     Dates: start: 20110629, end: 20120324
  8. ATIVAN [Concomitant]
     Indication: ANXIETY
     Dates: start: 20110119, end: 20120324
  9. AMLODIPINE [Concomitant]
     Indication: HYPERTENSION
     Dates: start: 20050101, end: 20120324
  10. ESOMEPRAZOLE MAGNESIUM [Concomitant]
     Dates: start: 20110916, end: 20120324
  11. BLINDED THERAPY [Suspect]
     Indication: NON-SMALL CELL LUNG CANCER
     Dates: start: 20120320, end: 20120320
  12. CENTRUM [Concomitant]
     Dates: start: 20051115, end: 20120324
  13. CITALOPRAM [Concomitant]
     Indication: DEPRESSION
     Dates: start: 20110623, end: 20120324
  14. TUSSIONEX [Concomitant]
     Indication: COUGH
     Dates: start: 20101124, end: 20120324
  15. HYDROCORTISONE [Concomitant]
     Indication: RASH
     Dates: start: 20100902, end: 20120324
  16. CLOBETASOL PROPIONATE [Concomitant]
     Indication: RASH
     Dates: start: 20090515, end: 20120324
  17. LOSARTAN POTASSIUM [Concomitant]
     Indication: HYPERTENSION
     Dates: start: 20110629, end: 20120324
  18. COREG [Concomitant]
     Indication: HYPERTENSION
     Dates: start: 20110131, end: 20120324
  19. CLOTRIMAZOLE [Concomitant]
     Indication: RASH
     Dates: start: 20101026, end: 20120324
  20. FAMOTIDINE [Concomitant]
     Dates: start: 20090101, end: 20120324
  21. ASPIRIN [Concomitant]
     Dates: start: 20051115, end: 20120324
  22. ZYRTEC [Concomitant]
     Dates: start: 20110915, end: 20120324
  23. BENAZEPRIL HYDROCHLORIDE [Concomitant]
     Indication: HYPERTENSION
     Dates: start: 20111105, end: 20120324

REACTIONS (1)
  - DEATH [None]
